FAERS Safety Report 4599878-0 (Version None)
Quarter: 2005Q1

REPORT INFORMATION
  Report Type: 
  Country: None (occurrence: None)
  Receive Date: 20050303
  Receipt Date: 20050208
  Transmission Date: 20050727
  Serious: Yes (Other)
  Sender: FDA-Public Use
  Company Number: CA_050207753

PATIENT
  Age: 1 Day
  Sex: Female
  Weight: 2 kg

DRUGS (1)
  1. HUMALOG [Suspect]
     Dates: start: 20040201

REACTIONS (4)
  - DRUG EXPOSURE DURING PREGNANCY [None]
  - FEEDING PROBLEM IN NEWBORN [None]
  - HYPOGLYCAEMIA NEONATAL [None]
  - PREMATURE BABY [None]
